FAERS Safety Report 10052036 (Version 3)
Quarter: 2014Q3

REPORT INFORMATION
  Report Type: Spontaneous
  Country: US (occurrence: US)
  Receive Date: 20140402
  Receipt Date: 20140721
  Transmission Date: 20150326
  Serious: Yes (Hospitalization, Other)
  Sender: FDA-Public Use
  Company Number: US-UCBSA-116445

PATIENT
  Age: 77 Year
  Sex: Male
  Weight: 81.6 kg

DRUGS (8)
  1. RANITIDINE [Concomitant]
     Active Substance: RANITIDINE\RANITIDINE HYDROCHLORIDE
     Indication: GASTROOESOPHAGEAL REFLUX DISEASE
     Dosage: 150 MG, 2X/DAY (BID)
     Route: 048
  2. ATORVASTATIN [Concomitant]
     Active Substance: ATORVASTATIN
     Indication: BLOOD CHOLESTEROL INCREASED
     Dosage: 80 MG, ONCE DAILY (QD)
     Route: 048
  3. NEUPRO [Suspect]
     Active Substance: ROTIGOTINE
     Indication: PARKINSON^S DISEASE
     Dosage: 4 MG, ONCE DAILY (QD)
     Route: 062
  4. MICARDIS [Concomitant]
     Active Substance: TELMISARTAN
     Indication: HYPERTENSION
     Dosage: 80 MG, ONCE DAILY (QD)
     Route: 048
  5. CARBIDOPA/LEVODOPA [Concomitant]
     Active Substance: CARBIDOPA\LEVODOPA
     Indication: PARKINSON^S DISEASE
     Dosage: 2 TABS, 3X/DAY (TID), 25/100 MG
     Route: 048
     Dates: start: 201010
  6. DILTIAZEM [Concomitant]
     Active Substance: DILTIAZEM
     Indication: HYPERTENSION
     Dosage: UNK
     Route: 048
  7. PROPRANOLOL [Concomitant]
     Active Substance: PROPRANOLOL\PROPRANOLOL HYDROCHLORIDE
     Indication: TREMOR
     Dosage: 40 MG, UNK
     Route: 048
     Dates: start: 2010
  8. HYDROCHLOROTHIAZIDE. [Concomitant]
     Active Substance: HYDROCHLOROTHIAZIDE
     Indication: HYPERTENSION
     Dosage: 25 MG, ONCE DAILY (QD)
     Route: 048

REACTIONS (3)
  - Hip fracture [Recovered/Resolved]
  - Urinary tract infection [Recovered/Resolved]
  - Weight decreased [Recovering/Resolving]

NARRATIVE: CASE EVENT DATE: 201402
